FAERS Safety Report 20937545 (Version 4)
Quarter: 2022Q4

REPORT INFORMATION
  Report Type: Report from Study
  Country: DZ (occurrence: None)
  Receive Date: 20220609
  Receipt Date: 20221024
  Transmission Date: 20230113
  Serious: Yes (Hospitalization)
  Sender: FDA-Public Use
  Company Number: DZ-Merck Healthcare KGaA-9327727

PATIENT
  Age: 61 Year
  Sex: Male

DRUGS (2)
  1. REBIF [Suspect]
     Active Substance: INTERFERON BETA-1A
     Indication: Multiple sclerosis
     Route: 058
     Dates: start: 20170101, end: 20220531
  2. REBIF [Suspect]
     Active Substance: INTERFERON BETA-1A
     Route: 058
     Dates: start: 20220615

REACTIONS (5)
  - Thyroid operation [Recovered/Resolved]
  - Neck pain [Unknown]
  - Dyspnoea [Unknown]
  - Stress [Unknown]
  - Product administration interrupted [Recovered/Resolved]

NARRATIVE: CASE EVENT DATE: 20210601
